FAERS Safety Report 5985041-5 (Version None)
Quarter: 2008Q4

REPORT INFORMATION
  Report Type: 
  Country: None (occurrence: None)
  Receive Date: 20081208
  Receipt Date: 20081123
  Transmission Date: 20090506
  Serious: Yes (Other)
  Sender: FDA-Public Use
  Company Number: US-JNJCH-2008055563

PATIENT
  Age: 29 Year
  Sex: Male
  Weight: 81.6 kg

DRUGS (2)
  1. DRAMAMINE [Suspect]
     Indication: MOTION SICKNESS
     Dosage: TEXT:ONE TABLET ONCE A DAY
     Route: 048
     Dates: start: 20081119, end: 20081120
  2. COUGH AND COLD PREPARATIONS [Interacting]
     Indication: NASOPHARYNGITIS
     Dosage: TEXT:UNSPECIFIED
     Route: 065

REACTIONS (2)
  - CONVULSION [None]
  - DRUG INTERACTION [None]
